FAERS Safety Report 15264983 (Version 4)
Quarter: 2019Q1

REPORT INFORMATION
  Report Type: Report from Study
  Country: DE (occurrence: DE)
  Receive Date: 20180810
  Receipt Date: 20190312
  Transmission Date: 20190417
  Serious: Yes (Hospitalization, Other)
  Sender: FDA-Public Use
  Company Number: DE-SA-2017SA241403

PATIENT
  Age: 29 Year
  Sex: Male
  Weight: 71 kg

DRUGS (7)
  1. ALEMTUZUMAB [Suspect]
     Active Substance: ALEMTUZUMAB
     Indication: MULTIPLE SCLEROSIS
     Dosage: 12 MG,UNK
     Route: 041
     Dates: start: 20170710, end: 20170714
  2. LORAZEPAM DURA [Concomitant]
     Dosage: 1 MG
  3. DACLIZUMAB [Concomitant]
     Active Substance: DACLIZUMAB
     Dosage: UNK
     Dates: start: 201612, end: 201706
  4. TIAPRID [Concomitant]
     Active Substance: TIAPRIDE HYDROCHLORIDE
     Dosage: 100 MG,2-2-2-
  5. ESCITALOPRAM [Concomitant]
     Active Substance: ESCITALOPRAM OXALATE
     Dosage: 5 MG,1-0-0
  6. ALEMTUZUMAB [Suspect]
     Active Substance: ALEMTUZUMAB
     Dosage: 12 MG
     Route: 041
     Dates: start: 20180917, end: 20180919
  7. OLANZAPIN BETA [Concomitant]
     Dosage: 5 MG,0-0-0-1

REACTIONS (9)
  - Influenza like illness [Recovered/Resolved]
  - Erectile dysfunction [Unknown]
  - Lymphopenia [Not Recovered/Not Resolved]
  - Ischaemic stroke [Recovered/Resolved]
  - Lichen planus [Recovering/Resolving]
  - Fatigue [Recovering/Resolving]
  - Haemorrhoids [Recovered/Resolved]
  - Vasectomy [Recovered/Resolved]
  - Anxiety disorder [Not Recovered/Not Resolved]

NARRATIVE: CASE EVENT DATE: 20170712
